FAERS Safety Report 25063901 (Version 1)
Quarter: 2025Q1

REPORT INFORMATION
  Report Type: Spontaneous
  Country: BE (occurrence: BE)
  Receive Date: 20250311
  Receipt Date: 20250311
  Transmission Date: 20250409
  Serious: Yes (Other)
  Sender: AUROBINDO
  Company Number: BE-FAMHP-DHH-N2025-124244

PATIENT
  Age: 18 Year
  Sex: Female

DRUGS (1)
  1. AMOXICILLIN\CLAVULANIC ACID [Suspect]
     Active Substance: AMOXICILLIN\CLAVULANIC ACID
     Indication: Pilonidal disease
     Route: 065

REACTIONS (2)
  - Pharyngeal swelling [Recovered/Resolved]
  - Swelling face [Recovered/Resolved]
